FAERS Safety Report 7040044-7 (Version None)
Quarter: 2010Q4

REPORT INFORMATION
  Report Type: 
  Country: None (occurrence: None)
  Receive Date: 20101012
  Receipt Date: 20101005
  Transmission Date: 20110411
  Serious: Yes (Other)
  Sender: FDA-Public Use
  Company Number: US-JNJCH-2010022943

PATIENT
  Age: 65 Year
  Sex: Female
  Weight: 102.1 kg

DRUGS (2)
  1. BENADRYL [Suspect]
     Indication: SLEEP DISORDER
     Dosage: TEXT:ONE 25MG AT NIGHT
     Route: 048
  2. CYMBALTA [Concomitant]
     Indication: PANIC ATTACK
     Dosage: TEXT:60 MG ONE DAILY
     Route: 065

REACTIONS (3)
  - HEART RATE INCREASED [None]
  - OFF LABEL USE [None]
  - PALPITATIONS [None]
